FAERS Safety Report 10475718 (Version 1)
Quarter: 2014Q3

REPORT INFORMATION
  Report Type: Spontaneous
  Country: DE (occurrence: DE)
  Receive Date: 20140925
  Receipt Date: 20140925
  Transmission Date: 20150326
  Serious: Yes (Other)
  Sender: FDA-Public Use
  Company Number: DE-TEVA-510122GER

PATIENT
  Age: 69 Year
  Sex: Female

DRUGS (5)
  1. RAMIPRIL. [Concomitant]
     Active Substance: RAMIPRIL
     Indication: HYPERTENSION
     Route: 048
  2. HALOPERIDOL-RATIOPHARM [Suspect]
     Active Substance: HALOPERIDOL
     Indication: DELUSION
     Dosage: MAXIMUM DAILY DOSE: 10 MG
     Route: 048
     Dates: start: 20140815, end: 20140901
  3. TRILEPTAL [Concomitant]
     Active Substance: OXCARBAZEPINE
     Indication: WITHDRAWAL SYNDROME
     Dosage: 300 MILLIGRAM DAILY;
     Route: 048
     Dates: start: 20140827
  4. VITAMIN B DUO [Concomitant]
     Indication: MALNUTRITION
     Route: 048
     Dates: start: 20140825
  5. METOPROLOL [Concomitant]
     Active Substance: METOPROLOL
     Indication: HYPERTENSION
     Route: 048

REACTIONS (1)
  - Soft tissue necrosis [Not Recovered/Not Resolved]

NARRATIVE: CASE EVENT DATE: 20140831
